FAERS Safety Report 4895441-2 (Version None)
Quarter: 2006Q1

REPORT INFORMATION
  Report Type: 
  Country: None (occurrence: None)
  Receive Date: 20060130
  Receipt Date: 20050927
  Transmission Date: 20060701
  Serious: No
  Sender: FDA-Public Use
  Company Number: US-GLAXOSMITHKLINE-A0576051A

PATIENT
  Sex: Female

DRUGS (3)
  1. EPIVIR [Suspect]
     Indication: HIV INFECTION
     Dosage: 300MG PER DAY
     Route: 048
  2. VIDEX EC [Concomitant]
     Route: 048
  3. KALETRA [Concomitant]
     Route: 048

REACTIONS (2)
  - HERPES ZOSTER [None]
  - URTICARIA [None]
